FAERS Safety Report 9304265 (Version 1)
Quarter: 2013Q2

REPORT INFORMATION
  Report Type: Spontaneous
  Country: US (occurrence: US)
  Receive Date: 20130522
  Receipt Date: 20130522
  Transmission Date: 20140414
  Serious: No
  Sender: FDA-Public Use
  Company Number: US-009507513-1305USA008712

PATIENT
  Sex: 0

DRUGS (2)
  1. MEVACOR TABLET [Suspect]
     Dosage: 40 MG, QD
     Route: 048
  2. DILTIAZEM HYDROCHLORIDE [Suspect]
     Dosage: UNK, QD

REACTIONS (2)
  - Drug interaction [Unknown]
  - No adverse event [Unknown]
